FAERS Safety Report 11691905 (Version 1)
Quarter: 2015Q4

REPORT INFORMATION
  Report Type: Spontaneous
  Country: DK (occurrence: DK)
  Receive Date: 20151103
  Receipt Date: 20151103
  Transmission Date: 20160304
  Serious: Yes (Other)
  Sender: FDA-Public Use
  Company Number: DK-ROCHE-1653680

PATIENT
  Age: 65 Year
  Sex: Female

DRUGS (3)
  1. HERCEPTIN [Suspect]
     Active Substance: TRASTUZUMAB
     Indication: BREAST CANCER METASTATIC
     Route: 065
     Dates: start: 201310, end: 201408
  2. DOCETAXEL. [Concomitant]
     Active Substance: DOCETAXEL
     Indication: BREAST CANCER METASTATIC
     Route: 065
     Dates: start: 2013, end: 201408
  3. ZOMETA [Concomitant]
     Active Substance: ZOLEDRONIC ACID
     Indication: BREAST CANCER METASTATIC
     Route: 065
     Dates: start: 2013, end: 201310

REACTIONS (6)
  - Fatigue [Not Recovered/Not Resolved]
  - Dyspnoea [Not Recovered/Not Resolved]
  - Mental disorder [Not Recovered/Not Resolved]
  - Quality of life decreased [Not Recovered/Not Resolved]
  - Cardiac failure [Not Recovered/Not Resolved]
  - Physical disability [Not Recovered/Not Resolved]

NARRATIVE: CASE EVENT DATE: 2014
